FAERS Safety Report 26127003 (Version 1)
Quarter: 2025Q4

REPORT INFORMATION
  Report Type: Spontaneous
  Country: US (occurrence: US)
  Receive Date: 20251205
  Receipt Date: 20251205
  Transmission Date: 20260117
  Serious: No
  Sender: PRIMUS PHARMACEUTICALS
  Company Number: US-PRIMUS-2025-US-036486

PATIENT
  Age: 66 Year
  Sex: Male

DRUGS (1)
  1. IMPOYZ [Suspect]
     Active Substance: CLOBETASOL PROPIONATE
     Indication: Product used for unknown indication
     Dosage: APPLY TOPICALLY TWICE A DAY FOR 1 TO 2 WEEKS AS NEEDED FOR FLARES
     Route: 061
     Dates: start: 20240726

REACTIONS (2)
  - Rash [Unknown]
  - Haemorrhage [Unknown]
